FAERS Safety Report 24361577 (Version 1)
Quarter: 2024Q3

REPORT INFORMATION
  Report Type: Other
  Country: NG (occurrence: NG)
  Receive Date: 20240925
  Receipt Date: 20240925
  Transmission Date: 20241016
  Serious: Yes (Death)
  Sender: ORBION PHARMACEUTICALS
  Company Number: NG-OrBion Pharmaceuticals Private Limited-2162011

PATIENT
  Age: 30 Year
  Sex: Male

DRUGS (2)
  1. LEVOFLOXACIN [Suspect]
     Active Substance: LEVOFLOXACIN
     Indication: Pseudomonas infection
  2. GENTAMICIN [Suspect]
     Active Substance: GENTAMICIN

REACTIONS (1)
  - Drug ineffective [Fatal]
